FAERS Safety Report 8893304 (Version 1)
Quarter: 2012Q4

REPORT INFORMATION
  Report Type: Spontaneous
  Country: US (occurrence: None)
  Receive Date: 20121031
  Receipt Date: 20121031
  Transmission Date: 20130627
  Serious: Yes (Other)
  Sender: FDA-Public Use
  Company Number: FK201203153

PATIENT
  Age: 12 Year
  Sex: Male

DRUGS (3)
  1. CLINDAMYCIN [Suspect]
     Indication: STAPHYLOCOCCAL INFECTION
  2. CALCIUM CARBONATE (CALCIUM CARBONATE) [Concomitant]
  3. SEVELAMER (SEVELAMER) [Concomitant]

REACTIONS (5)
  - Hyperphosphataemia [None]
  - Renal failure acute [None]
  - Peritoneal dialysis [None]
  - Blood phosphorus decreased [None]
  - Device malfunction [None]
